FAERS Safety Report 10017817 (Version 3)
Quarter: 2014Q2

REPORT INFORMATION
  Report Type: Spontaneous
  Country: US (occurrence: US)
  Receive Date: 20140318
  Receipt Date: 20140624
  Transmission Date: 20141212
  Serious: Yes (Hospitalization, Other)
  Sender: FDA-Public Use
  Company Number: US-ASTELLAS-2014US002395

PATIENT
  Sex: Male

DRUGS (1)
  1. XTANDI [Suspect]
     Indication: PROSTATE CANCER
     Route: 048
     Dates: start: 20140203, end: 20140528

REACTIONS (6)
  - Eye contusion [Unknown]
  - Neoplasm [Unknown]
  - Renal failure [Unknown]
  - Spinal cord compression [Unknown]
  - Arthralgia [Unknown]
  - Back pain [Unknown]
